FAERS Safety Report 25587153 (Version 1)
Quarter: 2025Q3

REPORT INFORMATION
  Report Type: Spontaneous
  Country: US (occurrence: US)
  Receive Date: 20250721
  Receipt Date: 20250721
  Transmission Date: 20251020
  Serious: Yes (Other)
  Sender: DR REDDYS
  Company Number: None

PATIENT
  Age: 48 Year
  Sex: Female

DRUGS (8)
  1. HEPARIN [Suspect]
     Active Substance: HEPARIN SODIUM
     Indication: Product used for unknown indication
  2. DOBUTAMINE [Concomitant]
     Active Substance: DOBUTAMINE HYDROCHLORIDE
     Indication: Giant cell myocarditis
  3. METHYLPREDNISOLONE [Concomitant]
     Active Substance: METHYLPREDNISOLONE
     Indication: Giant cell myocarditis
  4. TACROLIMUS [Concomitant]
     Active Substance: TACROLIMUS
     Indication: Giant cell myocarditis
  5. MYCOPHENOLATE MOFETIL [Concomitant]
     Active Substance: MYCOPHENOLATE MOFETIL
     Indication: Giant cell myocarditis
  6. AMIODARONE [Concomitant]
     Active Substance: AMIODARONE
     Indication: Ventricular tachycardia
     Route: 042
  7. LIDOCAINE [Concomitant]
     Active Substance: LIDOCAINE
     Indication: Ventricular tachycardia
     Route: 042
  8. OXYGEN [Concomitant]
     Active Substance: OXYGEN
     Indication: Hypoxia
     Route: 050

REACTIONS (3)
  - Heparin-induced thrombocytopenia [Unknown]
  - Acute kidney injury [Unknown]
  - Jugular vein thrombosis [Unknown]
